FAERS Safety Report 5005664-X (Version None)
Quarter: 2006Q2

REPORT INFORMATION
  Report Type: 
  Country: None (occurrence: None)
  Receive Date: 20060515
  Receipt Date: 20060503
  Transmission Date: 20061013
  Serious: Yes (Hospitalization)
  Sender: FDA-Public Use
  Company Number: 2006040686

PATIENT
  Age: 41 Year
  Sex: Female
  Weight: 66 kg

DRUGS (10)
  1. SUTENT [Suspect]
     Indication: GASTRIC CANCER
     Dosage: 50 MG (50 MG, 1 IN 1 D) ORAL
     Route: 048
     Dates: start: 20060215, end: 20060313
  2. OXYCODONE HCL [Concomitant]
  3. MEDILAC-S (BACILLUS SUBTILIS, STREPTOCOCCUS FAECALIS) [Concomitant]
  4. ITOPRIDE [Concomitant]
  5. IBUPROFEN [Concomitant]
  6. ARGININE [Concomitant]
  7. OFLOXACIN [Concomitant]
  8. CIPROFLOXACIN [Concomitant]
  9. FUROSEMIDE [Concomitant]
  10. SUCRALFATE [Concomitant]

REACTIONS (11)
  - ADNEXA UTERI MASS [None]
  - ASCITES [None]
  - DISEASE PROGRESSION [None]
  - DRUG TOXICITY [None]
  - FACE OEDEMA [None]
  - LOCAL SWELLING [None]
  - LYMPHADENOPATHY [None]
  - NEUTROPENIA [None]
  - OEDEMA [None]
  - PAIN [None]
  - PERITONITIS [None]
